FAERS Safety Report 13507699 (Version 1)
Quarter: 2017Q2

REPORT INFORMATION
  Report Type: Spontaneous
  Country: IN (occurrence: IN)
  Receive Date: 20170503
  Receipt Date: 20170503
  Transmission Date: 20170830
  Serious: Yes (Other)
  Sender: FDA-Public Use
  Company Number: IN-BION-006226

PATIENT
  Age: 35 Year
  Sex: Female

DRUGS (1)
  1. VALPROIC ACID UNKNOWN PRODUCT [Suspect]
     Active Substance: VALPROIC ACID
     Indication: EPILEPSY
     Route: 048

REACTIONS (2)
  - Coma [Recovered/Resolved]
  - Hyperammonaemic encephalopathy [Recovered/Resolved]
